FAERS Safety Report 10154558 (Version 1)
Quarter: 2014Q2

REPORT INFORMATION
  Report Type: Spontaneous
  Country: CA (occurrence: None)
  Receive Date: 20140502
  Receipt Date: 20140502
  Transmission Date: 20141212
  Serious: Yes (Death)
  Sender: FDA-Public Use
  Company Number: INT_00376_2014

PATIENT
  Age: 53 Year
  Sex: Male

DRUGS (2)
  1. CISPLATIN [Suspect]
     Indication: SMALL CELL LUNG CANCER
     Dosage: [DAYS 1-3, FOR 3 MONTHLY CYCLES] INTRAVENOUS (NOT OTHERWISE SPECIFIED))
     Route: 042
  2. ETOPOSIDE [Concomitant]

REACTIONS (3)
  - Aortic thrombosis [None]
  - Renal infarct [None]
  - Multi-organ failure [None]
